FAERS Safety Report 5657885-0 (Version None)
Quarter: 2008Q1

REPORT INFORMATION
  Report Type: 
  Country: None (occurrence: None)
  Receive Date: 20080305
  Receipt Date: 20080222
  Transmission Date: 20080703
  Serious: No
  Sender: FDA-Public Use
  Company Number: 2007-158622-NL

PATIENT
  Sex: Female

DRUGS (1)
  1. NUVARING [Suspect]
     Dosage: DF

REACTIONS (6)
  - ABDOMINAL TENDERNESS [None]
  - CERVICAL DYSPLASIA [None]
  - HEADACHE [None]
  - MENORRHAGIA [None]
  - METRORRHAGIA [None]
  - NIPPLE PAIN [None]
